FAERS Safety Report 8116628-1 (Version None)
Quarter: 2012Q1

REPORT INFORMATION
  Report Type: 
  Country: None (occurrence: None)
  Receive Date: 20120206
  Receipt Date: 20120124
  Transmission Date: 20120608
  Serious: Yes (Hospitalization)
  Sender: FDA-Public Use
  Company Number: PHHY2010US59419

PATIENT
  Sex: Female
  Weight: 104 kg

DRUGS (18)
  1. GLEEVEC [Suspect]
     Indication: CHRONIC MYELOID LEUKAEMIA
     Dosage: 400 MG, DAILY
     Route: 048
     Dates: start: 20100623, end: 20100831
  2. ADVAIR DISKUS 100/50 [Concomitant]
     Dosage: 50 UNK, BID
  3. XOPENEX [Concomitant]
  4. COMPAZINE [Concomitant]
     Dosage: 10 MG, PRN
     Route: 048
  5. PREVACID [Concomitant]
     Dosage: 30 MG, UNK
  6. ADVAIR DISKUS 100/50 [Concomitant]
  7. DARVOCET-N 50 [Concomitant]
  8. CLARITIN [Concomitant]
     Dosage: 10 MG, DAILY
     Route: 048
  9. CRESTOR [Concomitant]
     Dosage: 20 MG, UNK
  10. FLONASE [Concomitant]
     Dosage: 1 PUFF EA NOSTRIL DAILY
  11. COMBIVENT [Concomitant]
     Dosage: 2 PUFFS PRN
  12. ULTRAM [Concomitant]
     Dosage: 2 DF, Q6H
     Route: 048
  13. DIOVAN [Concomitant]
     Dosage: 80 MG, DAILY
  14. COREG [Concomitant]
     Dosage: 25 MG, BID
  15. ENALAPRIL MALEATE [Concomitant]
     Dosage: 10 MG, DAILY
  16. SPIRIVA [Concomitant]
     Dosage: 18 UG, DAILY
  17. ATROVENT [Concomitant]
     Dosage: 2 PUFF IH BID
  18. SYNTHROID [Concomitant]
     Dosage: 100 UG, BID
     Route: 048

REACTIONS (12)
  - PERIORBITAL OEDEMA [None]
  - GENERALISED OEDEMA [None]
  - ATRIAL FIBRILLATION [None]
  - DYSPNOEA PAROXYSMAL NOCTURNAL [None]
  - DYSPNOEA [None]
  - OEDEMA PERIPHERAL [None]
  - BRONCHITIS [None]
  - HYPOTENSION [None]
  - ORTHOPNOEA [None]
  - DYSURIA [None]
  - CARDIAC FAILURE CONGESTIVE [None]
  - SWELLING FACE [None]
